FAERS Safety Report 7741076-3 (Version None)
Quarter: 2011Q3

REPORT INFORMATION
  Report Type: 
  Country: None (occurrence: None)
  Receive Date: 20110909
  Receipt Date: 20110502
  Transmission Date: 20111222
  Serious: Yes (Death)
  Sender: FDA-Public Use
  Company Number: DK-ASTRAZENECA-1989AP52544

PATIENT
  Age: 26 Month
  Sex: Male

DRUGS (8)
  1. MORPHINE [Concomitant]
     Dates: start: 19890801
  2. POTASSIUM [Concomitant]
  3. PROPOFOL [Suspect]
     Indication: SEDATION
     Dosage: 10-23   MG/KG/HR
     Route: 042
     Dates: start: 19890805
  4. DIGOXIN [Concomitant]
  5. BARBITURATES (UNSPECIFIED) [Concomitant]
     Dates: start: 19890601, end: 19890601
  6. PANCURONIUM [Concomitant]
     Dates: start: 19890801
  7. PROPOFOL [Suspect]
     Indication: CROUP INFECTIOUS
     Dosage: 10-23   MG/KG/HR
     Route: 042
     Dates: start: 19890805
  8. DOPAMINE HCL [Concomitant]

REACTIONS (4)
  - HEPATOMEGALY [None]
  - CHROMATURIA [None]
  - MULTI-ORGAN FAILURE [None]
  - PROPOFOL INFUSION SYNDROME [None]
